FAERS Safety Report 19822863 (Version 1)
Quarter: 2021Q3

REPORT INFORMATION
  Report Type: Spontaneous
  Country: US (occurrence: US)
  Receive Date: 20210913
  Receipt Date: 20210913
  Transmission Date: 20211014
  Serious: No
  Sender: FDA-Public Use
  Company Number: US-OCULAR THERAPEUTIX-2021OCX00034

PATIENT
  Age: 72 Year
  Sex: Male
  Weight: 132 kg

DRUGS (8)
  1. DEXTENZA [Suspect]
     Active Substance: DEXAMETHASONE
     Dosage: UNK, INSERTED THROUGH THE RIGHT PUNCTUM
     Dates: start: 20210621
  2. VIGAMOX [Concomitant]
     Active Substance: MOXIFLOXACIN HYDROCHLORIDE
     Dosage: UNK, 4X/DAY IN BOTH EYES X2W OR UNTIL GONE FOLLOWING CATARACT SURGERY
  3. KETOROLAC [Suspect]
     Active Substance: KETOROLAC TROMETHAMINE
     Dosage: UNK, 4X/DAY IN BOTH EYES X2W OR UNTIL GONE FOLLOWING CATARACT SURGERY
     Dates: start: 20210614
  4. ZOLOFT [Concomitant]
     Active Substance: SERTRALINE HYDROCHLORIDE
  5. ASA [Concomitant]
     Active Substance: ASPIRIN
  6. LOPID [Concomitant]
     Active Substance: GEMFIBROZIL
  7. DEXTENZA [Suspect]
     Active Substance: DEXAMETHASONE
     Indication: CATARACT OPERATION
     Dosage: UNK, INSERTED THROUH THE LEFT PUNCTUM
     Dates: start: 20210614
  8. FLOMAX [Concomitant]
     Active Substance: TAMSULOSIN HYDROCHLORIDE

REACTIONS (5)
  - Anterior chamber cell [Not Recovered/Not Resolved]
  - Pain [Recovering/Resolving]
  - Iritis [Recovering/Resolving]
  - Discomfort [Recovering/Resolving]
  - Inflammation [Recovering/Resolving]

NARRATIVE: CASE EVENT DATE: 202106
